FAERS Safety Report 8384593-8 (Version None)
Quarter: 2012Q2

REPORT INFORMATION
  Report Type: 
  Country: None (occurrence: None)
  Receive Date: 20120524
  Receipt Date: 20120514
  Transmission Date: 20120825
  Serious: Yes (Other)
  Sender: FDA-Public Use
  Company Number: CA-JNJFOC-20120513164

PATIENT
  Sex: Female
  Weight: 79.8 kg

DRUGS (10)
  1. BIRTH CONTROL PILL [Concomitant]
     Route: 065
  2. REMICADE [Suspect]
     Indication: COLITIS ULCERATIVE
     Route: 042
     Dates: start: 20111104
  3. REMICADE [Suspect]
     Route: 042
     Dates: start: 20111021
  4. REMICADE [Suspect]
     Route: 042
     Dates: start: 20120514
  5. REMICADE [Suspect]
     Route: 042
     Dates: start: 20111130
  6. TYLENOL [Concomitant]
     Indication: ARTHRITIS
     Route: 065
  7. REMICADE [Suspect]
     Route: 042
     Dates: start: 20120131
  8. CELEXA [Concomitant]
     Route: 065
  9. REMICADE [Suspect]
     Route: 042
     Dates: start: 20120321
  10. REMICADE [Suspect]
     Dosage: 6TH INFUSION
     Route: 042
     Dates: start: 20120417

REACTIONS (3)
  - LIGAMENT SPRAIN [None]
  - CONTUSION [None]
  - FALL [None]
